FAERS Safety Report 7300814-4 (Version None)
Quarter: 2011Q1

REPORT INFORMATION
  Report Type: 
  Country: None (occurrence: None)
  Receive Date: 20110218
  Receipt Date: 20110126
  Transmission Date: 20110831
  Serious: No
  Sender: FDA-Public Use
  Company Number: US-B.I. PHARMACEUTICALS,INC./RIDGEFIELD-2011-BP-02864BP

PATIENT
  Sex: Male

DRUGS (6)
  1. OMEPRAZOLE [Concomitant]
     Indication: ULCER
  2. METOPROLOL [Concomitant]
     Indication: ATRIAL FIBRILLATION
  3. LISINOPRIL AND HYDROCHLOROTHIAZIDE [Concomitant]
     Indication: HYPERTENSION
  4. PRADAXA [Suspect]
     Indication: ATRIAL FIBRILLATION
     Dosage: 300 MG
     Route: 048
     Dates: start: 20110122, end: 20110124
  5. LORTAB [Concomitant]
     Indication: ARTHRITIS
  6. ALLOPURINOL [Concomitant]
     Indication: GOUT

REACTIONS (5)
  - ABDOMINAL DISTENSION [None]
  - HYPOAESTHESIA [None]
  - FLATULENCE [None]
  - ABDOMINAL DISCOMFORT [None]
  - DIARRHOEA [None]
